FAERS Safety Report 15946888 (Version 1)
Quarter: 2019Q1

REPORT INFORMATION
  Report Type: Spontaneous
  Country: IT (occurrence: IT)
  Receive Date: 20190211
  Receipt Date: 20190211
  Transmission Date: 20190417
  Serious: Yes (Other)
  Sender: FDA-Public Use
  Company Number: IT-MYLANLABS-2019M1011078

PATIENT
  Age: 17 Year
  Sex: Male

DRUGS (8)
  1. CLEXANE [Suspect]
     Active Substance: ENOXAPARIN SODIUM
     Indication: PRODUCT USED FOR UNKNOWN INDICATION
     Dosage: 2000 KILO-INTERNATIONAL UNIT, QD
     Route: 058
     Dates: start: 20180222
  2. KLACID [Suspect]
     Active Substance: CLARITHROMYCIN
     Indication: PNEUMONITIS
     Dosage: 400 MILLIGRAM, QD
  3. BACLOFEN. [Suspect]
     Active Substance: BACLOFEN
     Indication: PNEUMONITIS
     Dosage: 1 DOSAGE FORM, QD
  4. MERREM [Suspect]
     Active Substance: MEROPENEM
     Indication: PNEUMONITIS
     Dosage: 800 MILLIGRAM, QD
  5. ZYVOXID [Suspect]
     Active Substance: LINEZOLID
     Indication: PNEUMONITIS
     Dosage: 600 MILLIGRAM, QD
     Route: 042
     Dates: start: 20180222
  6. DIPRIVAN [Suspect]
     Active Substance: PROPOFOL
     Indication: PNEUMONITIS
     Dosage: 2 PERCENT, TOTAL
     Dates: start: 20180222
  7. URBASON                            /00049601/ [Concomitant]
     Active Substance: METHYLPREDNISOLONE
  8. PANTORC [Concomitant]
     Active Substance: PANTOPRAZOLE SODIUM

REACTIONS (3)
  - Aspartate aminotransferase increased [Recovering/Resolving]
  - Alanine aminotransferase increased [Recovering/Resolving]
  - Gamma-glutamyltransferase increased [Recovering/Resolving]

NARRATIVE: CASE EVENT DATE: 20180226
